FAERS Safety Report 4756136-9 (Version None)
Quarter: 2005Q3

REPORT INFORMATION
  Report Type: 
  Country: None (occurrence: None)
  Receive Date: 20050830
  Receipt Date: 20050824
  Transmission Date: 20060218
  Serious: Yes (Hospitalization)
  Sender: FDA-Public Use
  Company Number: 2005UW12605

PATIENT
  Age: 36 Year
  Sex: Female
  Weight: 52.2 kg

DRUGS (3)
  1. ZOMIG-ZMT [Suspect]
     Indication: MIGRAINE
     Route: 048
  2. PENICILLIN [Concomitant]
  3. ORTHO PATCH [Concomitant]

REACTIONS (1)
  - CARDIAC DISORDER [None]
